FAERS Safety Report 18729963 (Version 1)
Quarter: 2021Q1

REPORT INFORMATION
  Report Type: Spontaneous
  Country: NO (occurrence: NO)
  Receive Date: 20210112
  Receipt Date: 20210112
  Transmission Date: 20210419
  Serious: Yes (Hospitalization, Other)
  Sender: FDA-Public Use
  Company Number: NO-GLAXOSMITHKLINE-NO2021000707

PATIENT
  Age: 39 Year
  Sex: Female
  Weight: 105 kg

DRUGS (9)
  1. LAMICTAL [Suspect]
     Active Substance: LAMOTRIGINE
     Indication: BIPOLAR II DISORDER
     Dosage: 300 MG, (DOSE GRADUALLY REDUCED FROM 300 MILLIGRAMS TO 200 MILLIGRAMS OVER A DURATION OF 14 DAYS.)
     Route: 048
  2. TOPIMAX [Concomitant]
     Indication: MIGRAINE PROPHYLAXIS
     Dosage: 100 MG, (100 MG EVENING)
     Route: 065
  3. LITHIONIT [Concomitant]
     Active Substance: LITHIUM SULFATE
     Indication: BIPOLAR II DISORDER
     Dosage: UNK, (83 + 40MG EVENING, 83MG MORNING)
     Route: 065
  4. LAMICTAL [Suspect]
     Active Substance: LAMOTRIGINE
     Dosage: 150 MG, QD, (TAKEN EVENINGS)
     Route: 048
     Dates: start: 20201204
  5. VITAMIN D [Concomitant]
     Active Substance: VITAMIN D NOS
     Indication: PRODUCT USED FOR UNKNOWN INDICATION
     Dosage: UNK
     Route: 065
  6. ESCITALOPRAM [Concomitant]
     Active Substance: ESCITALOPRAM OXALATE
     Indication: DEPRESSION
     Dosage: 10 MG, (10 MG TOMORROW)
     Route: 065
  7. ELVANSE [Concomitant]
     Active Substance: LISDEXAMFETAMINE DIMESYLATE
     Indication: ATTENTION DEFICIT HYPERACTIVITY DISORDER
     Dosage: 70 MG, (70 MG MORNING)
     Route: 065
  8. LAMICTAL [Suspect]
     Active Substance: LAMOTRIGINE
     Indication: DEPRESSION
     Dosage: 200 MG
     Route: 048
  9. LAMICTAL [Suspect]
     Active Substance: LAMOTRIGINE
     Dosage: 100 MG
     Route: 048
     Dates: start: 20201127

REACTIONS (2)
  - Migraine [Recovered/Resolved]
  - Myalgia [Recovered/Resolved]

NARRATIVE: CASE EVENT DATE: 20201128
